FAERS Safety Report 9992722 (Version 2)
Quarter: 2014Q2

REPORT INFORMATION
  Report Type: Spontaneous
  Country: US (occurrence: US)
  Receive Date: 20140310
  Receipt Date: 20140402
  Transmission Date: 20141212
  Serious: No
  Sender: FDA-Public Use
  Company Number: US-PFIZER INC-2014067445

PATIENT
  Age: 52 Year
  Sex: Female

DRUGS (1)
  1. LYRICA [Suspect]
     Dosage: UNK

REACTIONS (3)
  - Drug hypersensitivity [Unknown]
  - Fatigue [Unknown]
  - Somnolence [Unknown]
